FAERS Safety Report 9840954 (Version 1)
Quarter: 2014Q1

REPORT INFORMATION
  Report Type: Spontaneous
  Country: FR (occurrence: FR)
  Receive Date: 20140124
  Receipt Date: 20140124
  Transmission Date: 20141002
  Serious: Yes (Hospitalization)
  Sender: FDA-Public Use
  Company Number: FR-ELI_LILLY_AND_COMPANY-FR201401003667

PATIENT
  Age: 88 Year
  Sex: Male
  Weight: 61 kg

DRUGS (12)
  1. ZYPREXA [Suspect]
     Indication: PRODUCT USED FOR UNKNOWN INDICATION
     Dosage: 5 MG, QD
     Route: 048
     Dates: end: 20130918
  2. MOVICOL                            /01625101/ [Concomitant]
     Dosage: 2 DF, EACH MORNING
  3. GABAPENTINE [Concomitant]
     Dosage: 2 DF, TID
  4. OSTRAM-VIT. D3 [Concomitant]
     Dosage: UNK, EACH MORNING
     Route: 048
  5. SERESTA [Concomitant]
     Dosage: 25 MG, QD
  6. MONTELUKAST SODIUM [Concomitant]
     Dosage: 10 MG, EACH EVENING
  7. EXELON                             /01383201/ [Concomitant]
     Dosage: 9.5 MG, QD
     Route: 062
  8. SIMBICORT TURBUHALER [Concomitant]
     Dosage: UNK, BID
  9. DAFALGAN CODEINE [Concomitant]
     Dosage: UNK, EACH MORNING
  10. ARTOTEC [Concomitant]
     Dosage: UNK, QD
  11. FLECTOR                            /00372302/ [Concomitant]
     Dosage: UNK, TID
  12. ZOPICLONE [Concomitant]
     Dosage: UNK, EACH EVENING

REACTIONS (3)
  - Somnolence [Recovered/Resolved]
  - Fall [Recovered/Resolved]
  - Gait disturbance [Unknown]
